FAERS Safety Report 22235852 (Version 1)
Quarter: 2023Q2

REPORT INFORMATION
  Report Type: Spontaneous
  Country: PL (occurrence: None)
  Receive Date: 20230420
  Receipt Date: 20230420
  Transmission Date: 20230722
  Serious: Yes (Other)
  Sender: FDA-Public Use
  Company Number: 2022A398156

PATIENT
  Age: 41 Year
  Sex: Male

DRUGS (6)
  1. OMEPRAZOLE [Suspect]
     Active Substance: OMEPRAZOLE
     Indication: Abdominal pain upper
     Route: 048
  2. QUETIAPINE [Suspect]
     Active Substance: QUETIAPINE
     Indication: Anxiety
     Route: 048
  3. QUETIAPINE [Suspect]
     Active Substance: QUETIAPINE
     Indication: Insomnia
     Route: 048
  4. IBUPROFEN [Concomitant]
     Active Substance: IBUPROFEN
     Indication: Visceral pain
  5. TRAMADOL [Concomitant]
     Active Substance: TRAMADOL
     Indication: Visceral pain
  6. TRAMADOL [Concomitant]
     Active Substance: TRAMADOL
     Indication: Visceral pain

REACTIONS (7)
  - Seizure [Unknown]
  - Anxiety [Unknown]
  - Insomnia [Unknown]
  - Product use in unapproved indication [Recovered/Resolved]
  - Visceral pain [Unknown]
  - Dyslipidaemia [Unknown]
  - Drug ineffective [Unknown]
